FAERS Safety Report 7528434-7 (Version None)
Quarter: 2011Q2

REPORT INFORMATION
  Report Type: 
  Country: None (occurrence: None)
  Receive Date: 20110607
  Receipt Date: 20101220
  Transmission Date: 20111010
  Serious: No
  Sender: FDA-Public Use
  Company Number: US-ASTRAZENECA-2011SE01047

PATIENT

DRUGS (3)
  1. VITAMINS /90003601/ [Concomitant]
     Dosage: UNKNOWN.
  2. STEROID [Concomitant]
     Indication: INTERVERTEBRAL DISC OPERATION
     Dosage: UNKNOWN.
  3. PRILOSEC OTC [Suspect]
     Indication: GASTROOESOPHAGEAL REFLUX DISEASE
     Dosage: UNKNOWN.
     Route: 048

REACTIONS (2)
  - FAECES DISCOLOURED [None]
  - ABDOMINAL DISTENSION [None]
